FAERS Safety Report 6745513-2 (Version None)
Quarter: 2010Q2

REPORT INFORMATION
  Report Type: 
  Country: None (occurrence: None)
  Receive Date: 20100528
  Receipt Date: 20100519
  Transmission Date: 20101027
  Serious: No
  Sender: FDA-Public Use
  Company Number: US-JNJFOC-20100508206

PATIENT
  Sex: Male

DRUGS (1)
  1. FENTANYL CITRATE [Suspect]
     Indication: PAIN
     Route: 062

REACTIONS (4)
  - DYSPHONIA [None]
  - FATIGUE [None]
  - PRODUCT QUALITY ISSUE [None]
  - WRONG TECHNIQUE IN DRUG USAGE PROCESS [None]
